FAERS Safety Report 9223263 (Version 2)
Quarter: 2013Q2

REPORT INFORMATION
  Report Type: Spontaneous
  Country: US (occurrence: US)
  Receive Date: 20130410
  Receipt Date: 20130502
  Transmission Date: 20140414
  Serious: Yes (Hospitalization)
  Sender: FDA-Public Use
  Company Number: US-FRI-1000044013

PATIENT
  Age: 52 Year
  Sex: Female

DRUGS (7)
  1. VIIBRYD [Suspect]
     Indication: DEPRESSION
     Dosage: 10 MG
     Route: 048
     Dates: start: 201210, end: 2012
  2. VIIBRYD [Suspect]
     Dosage: 20 MG
     Route: 048
     Dates: start: 2012, end: 2012
  3. VIIBRYD [Suspect]
     Dosage: 40 MG
     Route: 048
     Dates: start: 2012, end: 201212
  4. VIIBRYD [Suspect]
     Indication: DEPRESSION
     Dosage: 60 MG
     Route: 048
     Dates: start: 201212, end: 201212
  5. INDERAL [Concomitant]
     Indication: PALPITATIONS
  6. KLONOPIN [Concomitant]
     Indication: ANXIETY
     Dosage: TID
  7. KLONOPIN [Concomitant]
     Dosage: QD

REACTIONS (2)
  - Depression [Not Recovered/Not Resolved]
  - Prescribed overdose [Recovered/Resolved]
